FAERS Safety Report 17603558 (Version 1)
Quarter: 2020Q1

REPORT INFORMATION
  Report Type: Spontaneous
  Country: US (occurrence: US)
  Receive Date: 20200327
  Receipt Date: 20200327
  Transmission Date: 20200409
  Serious: Yes (Hospitalization)
  Sender: FDA-Public Use
  Company Number: None

PATIENT
  Age: 79 Year
  Sex: Female
  Weight: 50.8 kg

DRUGS (3)
  1. 5-FLUOROURACIL (5-FU) [Suspect]
     Active Substance: FLUOROURACIL
     Dates: end: 20200211
  2. ELOXATIN [Suspect]
     Active Substance: OXALIPLATIN
     Dates: end: 20200211
  3. LEUCOVORIN CALCIUM. [Suspect]
     Active Substance: LEUCOVORIN CALCIUM
     Dates: end: 20200211

REACTIONS (6)
  - Dehydration [None]
  - Enteritis [None]
  - Neutrophil count decreased [None]
  - White blood cell count decreased [None]
  - Diarrhoea [None]
  - Discomfort [None]

NARRATIVE: CASE EVENT DATE: 20200225
